FAERS Safety Report 9914149 (Version 1)
Quarter: 2014Q1

REPORT INFORMATION
  Report Type: Spontaneous
  Country: DE (occurrence: DE)
  Receive Date: 20140220
  Receipt Date: 20140220
  Transmission Date: 20141002
  Serious: Yes (Congenital Anomaly)
  Sender: FDA-Public Use
  Company Number: DE-PFIZER INC-2014042320

PATIENT
  Age: 1 Day
  Sex: Female
  Weight: 3.45 kg

DRUGS (7)
  1. VENLAFAXINE HCL [Suspect]
     Indication: POST-TRAUMATIC STRESS DISORDER
     Dosage: 150 MG, DAILY
     Route: 064
     Dates: start: 20120926
  2. VENLAFAXINE HCL [Suspect]
     Dosage: 75 MG, DAILY
     Route: 064
     Dates: end: 20130214
  3. VENLAFAXINE HCL [Suspect]
     Dosage: 150 MG, DAILY
     Route: 064
     Dates: start: 20130215
  4. VENLAFAXINE HCL [Suspect]
     Dosage: 75 MG, DAILY
     Route: 064
     Dates: end: 20130601
  5. FEMIBION PREGNANCY 1 [Concomitant]
     Indication: PROPHYLAXIS OF NEURAL TUBE DEFECT
     Dosage: 0.8 MG, DAILY
     Route: 064
     Dates: start: 20120825, end: 20130601
  6. METRONIDAZOLE [Concomitant]
     Indication: URINARY TRACT INFECTION
     Dosage: UNK
     Route: 064
     Dates: start: 20121102, end: 20121102
  7. CEFUROXIM [Concomitant]
     Indication: URINARY TRACT INFECTION
     Dosage: UNK
     Route: 064
     Dates: start: 20121102, end: 20121102

REACTIONS (3)
  - Maternal exposure during pregnancy [Unknown]
  - Naevus flammeus [Unknown]
  - Haemangioma congenital [Recovering/Resolving]
